FAERS Safety Report 19697258 (Version 1)
Quarter: 2021Q3

REPORT INFORMATION
  Report Type: Spontaneous
  Country: US (occurrence: US)
  Receive Date: 20210813
  Receipt Date: 20210813
  Transmission Date: 20211014
  Serious: Yes (Death, Other)
  Sender: FDA-Public Use
  Company Number: US-SLATE RUN PHARMACEUTICALS-21US000628

PATIENT

DRUGS (3)
  1. VANCOMYCIN HYDROCHLORIDE USP [Suspect]
     Active Substance: VANCOMYCIN HYDROCHLORIDE
     Indication: BACTERIAL INFECTION
     Dosage: UNK
     Route: 042
  2. AZTREONAM. [Suspect]
     Active Substance: AZTREONAM
     Indication: BACTERIAL INFECTION
     Dosage: UNK
     Route: 042
  3. METRONIDAZOLE. [Suspect]
     Active Substance: METRONIDAZOLE
     Indication: BACTERIAL INFECTION
     Dosage: UNK
     Route: 042

REACTIONS (13)
  - Renal failure [Not Recovered/Not Resolved]
  - Large intestine perforation [Unknown]
  - Respiratory failure [Not Recovered/Not Resolved]
  - Septic shock [Recovered/Resolved]
  - Enterococcal infection [Recovered/Resolved]
  - Abdominal abscess [Unknown]
  - Hepatic failure [Not Recovered/Not Resolved]
  - Candida infection [Recovered/Resolved]
  - Gastrointestinal haemorrhage [Unknown]
  - Death [Fatal]
  - Lactobacillus infection [Recovered/Resolved]
  - Gastrointestinal necrosis [Unknown]
  - Peritonitis [Unknown]
